FAERS Safety Report 4817971-1 (Version None)
Quarter: 2005Q4

REPORT INFORMATION
  Report Type: 
  Country: None (occurrence: None)
  Receive Date: 20051101
  Receipt Date: 20051101
  Transmission Date: 20060501
  Serious: Yes (Hospitalization)
  Sender: FDA-Public Use
  Company Number: None

PATIENT
  Age: 68 Year
  Sex: Male
  Weight: 100.6985 kg

DRUGS (18)
  1. LISINOPRIL [Suspect]
     Indication: CORONARY ARTERY DISEASE
     Dosage: 10 MG DAILY
  2. LISINOPRIL [Suspect]
     Indication: HYPERTENSION
     Dosage: 10 MG DAILY
  3. FUROSEMIDE [Suspect]
     Indication: HYPERTENSION
     Dosage: 20 MG
  4. CLOTRIMAZOLE 1% TOP [Concomitant]
  5. ALBUTEROL 3/IPRATROP [Concomitant]
  6. LOVASTATIN [Concomitant]
  7. SULFAMETHOXAZOLE 800/TRIMETH 160MG [Concomitant]
  8. BUPROPION HCL [Concomitant]
  9. CALCIUM 250MG/VITAMIN D [Concomitant]
  10. CLONIDINE HCL [Concomitant]
  11. OLANZAPINE [Concomitant]
  12. FUROSEMIDE [Concomitant]
  13. GUAIFENSIN [Concomitant]
  14. IBERET [Concomitant]
  15. INSULIN NOVOLIN [Concomitant]
  16. LISINOPRIL [Concomitant]
  17. PREDNISONE [Concomitant]
  18. THEOPHYLLINE [Concomitant]

REACTIONS (3)
  - DEHYDRATION [None]
  - HYPOTENSION [None]
  - MENTAL STATUS CHANGES [None]
